FAERS Safety Report 23009738 (Version 3)
Quarter: 2023Q4

REPORT INFORMATION
  Report Type: Spontaneous
  Country: SA (occurrence: SA)
  Receive Date: 20230929
  Receipt Date: 20231023
  Transmission Date: 20240110
  Serious: Yes (Hospitalization, Other)
  Sender: FDA-Public Use
  Company Number: SA-SA-SAC20230921001215

PATIENT
  Age: 20 Year
  Sex: Female

DRUGS (1)
  1. DUPIXENT [Suspect]
     Active Substance: DUPILUMAB
     Indication: Eosinophilic oesophagitis
     Dosage: 300 MG, QW
     Route: 065

REACTIONS (11)
  - Vasculitis [Unknown]
  - Pyrexia [Unknown]
  - Liver abscess [Unknown]
  - Hepatomegaly [Unknown]
  - Abdominal pain lower [Unknown]
  - Early satiety [Unknown]
  - Abdominal distension [Unknown]
  - Feeding disorder [Unknown]
  - Gastritis [Unknown]
  - Arthralgia [Unknown]
  - Product use in unapproved indication [Unknown]
